FAERS Safety Report 4316994-9 (Version None)
Quarter: 2004Q1

REPORT INFORMATION
  Report Type: 
  Country: None (occurrence: None)
  Receive Date: 20040312
  Receipt Date: 20040226
  Transmission Date: 20041129
  Serious: Yes (Death, Hospitalization)
  Sender: FDA-Public Use
  Company Number: ATO-04-017(0)

PATIENT
  Age: 74 Year
  Sex: Male
  Weight: 105.6881 kg

DRUGS (7)
  1. TRISENOX [Suspect]
     Indication: MULTIPLE MYELOMA
     Dosage: 26 MG (0.25 MG/KG, UNK), IVI
     Route: 042
     Dates: start: 20031013, end: 20031203
  2. THALIDOMIDE [Suspect]
     Indication: MULTIPLE MYELOMA
     Dosage: 50 MG (50 MG, DAILY, ORAL)
     Route: 048
     Dates: start: 20031013, end: 20031203
  3. ZOLADEX [Concomitant]
  4. MONOPRIL [Concomitant]
  5. MAXZIDE [Concomitant]
  6. COUMADIN [Concomitant]
  7. ROXICET [Concomitant]

REACTIONS (9)
  - DISORIENTATION [None]
  - DYSPNOEA [None]
  - ELECTROCARDIOGRAM QT PROLONGED [None]
  - HYPOTENSION [None]
  - MALIGNANT NEOPLASM PROGRESSION [None]
  - MULTIPLE MYELOMA [None]
  - NODAL ARRHYTHMIA [None]
  - OXYGEN SATURATION DECREASED [None]
  - RENAL FAILURE ACUTE [None]
